FAERS Safety Report 17129068 (Version 1)
Quarter: 2019Q4

REPORT INFORMATION
  Report Type: Spontaneous
  Country: PL (occurrence: PL)
  Receive Date: 20191209
  Receipt Date: 20191209
  Transmission Date: 20200122
  Serious: Yes (Other)
  Sender: FDA-Public Use
  Company Number: PL-TEVA-2019-PL-1149809

PATIENT
  Age: 81 Year
  Sex: Male

DRUGS (2)
  1. PACLITAXEL. [Suspect]
     Active Substance: PACLITAXEL
     Indication: SKIN CANCER
     Dosage: WEEKLY
     Route: 065
  2. CARBOPLATIN. [Suspect]
     Active Substance: CARBOPLATIN
     Indication: SKIN CANCER
     Dosage: DOSE WAS CALCULATED EVERY WEEK BY THE AREA UNDER THE CURVE (AUC2) USING THE COCKCROFT-GAULT FORMULA
     Route: 065

REACTIONS (2)
  - Skin toxicity [Unknown]
  - Neutropenia [Unknown]
